FAERS Safety Report 4649637-5 (Version None)
Quarter: 2005Q2

REPORT INFORMATION
  Report Type: 
  Country: None (occurrence: None)
  Receive Date: 20050502
  Receipt Date: 20050427
  Transmission Date: 20051028
  Serious: Yes (Death, Hospitalization, Other)
  Sender: FDA-Public Use
  Company Number: US-JNJFOC-20040903580

PATIENT
  Age: 46 Year
  Sex: Male

DRUGS (9)
  1. CYCLOBENZAPRINE HCL [Suspect]
     Indication: SUICIDE ATTEMPT
     Route: 049
  2. IBUPROFEN [Suspect]
     Indication: SUICIDE ATTEMPT
     Route: 049
  3. CHLORZOXAZONE [Suspect]
     Indication: SUICIDE ATTEMPT
     Route: 049
  4. METHYLPHENIDATE HCL [Suspect]
     Indication: SUICIDE ATTEMPT
     Route: 049
  5. HALOPERIDOL [Suspect]
     Indication: SUICIDE ATTEMPT
     Route: 049
  6. DIPHENHYDRAMINE HCL [Suspect]
     Indication: SUICIDE ATTEMPT
     Route: 049
  7. CEPHALEXIN [Suspect]
     Indication: SUICIDE ATTEMPT
     Route: 049
  8. NAPROXEN [Suspect]
     Indication: SUICIDE ATTEMPT
     Route: 049
  9. ETHANOL [Suspect]
     Indication: SUICIDE ATTEMPT
     Route: 049

REACTIONS (7)
  - BLOOD DISORDER [None]
  - COMPLETED SUICIDE [None]
  - ELECTROCARDIOGRAM QRS COMPLEX SHORTENED [None]
  - HEART RATE INCREASED [None]
  - INTENTIONAL MISUSE [None]
  - RESPIRATORY ARREST [None]
  - STUPOR [None]
